FAERS Safety Report 16700171 (Version 3)
Quarter: 2025Q3

REPORT INFORMATION
  Report Type: Spontaneous
  Country: EU (occurrence: EU)
  Receive Date: 20190813
  Receipt Date: 20250707
  Transmission Date: 20251020
  Serious: Yes (Other)
  Sender: NOVARTIS
  Company Number: PHHY2019RO185223

PATIENT
  Age: 65 Year
  Sex: Male

DRUGS (4)
  1. NILOTINIB [Suspect]
     Active Substance: NILOTINIB
     Indication: Chronic myeloid leukaemia
     Dosage: 800 MG, QD (ONCE A DAY)
     Route: 065
  2. IMATINIB [Suspect]
     Active Substance: IMATINIB
     Indication: Chronic myeloid leukaemia
     Dosage: 400 MG, QD, ONCE A DAY
     Route: 065
  3. DASATINIB [Suspect]
     Active Substance: DASATINIB
     Indication: Chronic myeloid leukaemia
     Dosage: 100 MG, QD (ONCE A DAY)
     Route: 065
  4. BOSUTINIB [Suspect]
     Active Substance: BOSUTINIB
     Indication: Chronic myeloid leukaemia
     Dosage: 800 MG, QD, ONCE A DAY
     Route: 065

REACTIONS (2)
  - Acquired gene mutation [Unknown]
  - Drug resistance [Unknown]
